FAERS Safety Report 9525383 (Version 1)
Quarter: 2013Q1

REPORT INFORMATION
  Report Type: Spontaneous
  Country: US (occurrence: None)
  Receive Date: 20130305
  Receipt Date: 20130305
  Transmission Date: 20140127
  Serious: Yes (Hospitalization)
  Sender: FDA-Public Use
  Company Number: 163-21880-12022970

PATIENT
  Age: 61 Year
  Sex: Female
  Weight: 86.18 kg

DRUGS (7)
  1. REVLIMID [Suspect]
     Indication: PLASMA CELL MYELOMA
     Route: 048
     Dates: start: 20110527, end: 20110609
  2. ATENOLOL [Concomitant]
  3. ASPIRIN (ACETYLSALICYLIC ACID) [Concomitant]
  4. FISH OIL [Concomitant]
  5. GLUCOSAMIN/CHONDROITIN (BIOGLAN JOINT MOBILITY) [Concomitant]
  6. LOVASTATIN [Concomitant]
  7. SYNTHROID (LEVOTHYROXINE SODIUM) [Concomitant]

REACTIONS (2)
  - Plasma cell myeloma [None]
  - Osteolysis [None]
